FAERS Safety Report 5733896-1 (Version None)
Quarter: 2008Q2

REPORT INFORMATION
  Report Type: 
  Country: None (occurrence: None)
  Receive Date: 20080509
  Receipt Date: 20080429
  Transmission Date: 20081010
  Serious: Yes (Hospitalization)
  Sender: FDA-Public Use
  Company Number: NL-PFIZER INC-2008037478

PATIENT
  Sex: Female

DRUGS (7)
  1. LYRICA [Suspect]
     Indication: NEURALGIA
     Route: 048
  2. EUTHYROX [Concomitant]
  3. CLONAZEPAM [Concomitant]
  4. OMEPRAZOLE [Concomitant]
  5. DICLOFENAC [Concomitant]
  6. ACETAMINOPHEN [Concomitant]
  7. PERINDOPRIL ERBUMINE [Concomitant]

REACTIONS (5)
  - DEPRESSED LEVEL OF CONSCIOUSNESS [None]
  - DIZZINESS [None]
  - FATIGUE [None]
  - MEMORY IMPAIRMENT [None]
  - TONGUE DISORDER [None]
